FAERS Safety Report 9575722 (Version 1)
Quarter: 2013Q4

REPORT INFORMATION
  Report Type: Spontaneous
  Country: US (occurrence: US)
  Receive Date: 20131001
  Receipt Date: 20131001
  Transmission Date: 20140711
  Serious: No
  Sender: FDA-Public Use
  Company Number: US-AMGEN-USASP2012036829

PATIENT
  Age: 53 Year
  Sex: Female
  Weight: 59 kg

DRUGS (4)
  1. PROCRIT [Suspect]
     Indication: HAEMOLYTIC ANAEMIA
     Dosage: UNK, QWK
     Route: 058
     Dates: end: 201205
  2. PROCRIT [Suspect]
     Dosage: UNK
     Route: 058
     Dates: start: 201205
  3. RIBAVIRIN [Concomitant]
     Indication: HEPATITIS C
     Dosage: UNK
     Dates: start: 2011
  4. INTERFERON [Concomitant]
     Indication: HEPATITIS C
     Dosage: UNK
     Dates: start: 2011

REACTIONS (5)
  - Abnormal loss of weight [Recovering/Resolving]
  - Drug intolerance [Unknown]
  - Drug dose omission [Not Recovered/Not Resolved]
  - Laboratory test abnormal [Unknown]
  - Injection site pain [Not Recovered/Not Resolved]
